FAERS Safety Report 15271847 (Version 1)
Quarter: 2018Q3

REPORT INFORMATION
  Report Type: Spontaneous
  Country: FR (occurrence: FR)
  Receive Date: 20180813
  Receipt Date: 20180813
  Transmission Date: 20181010
  Serious: Yes (Hospitalization)
  Sender: FDA-Public Use
  Company Number: FR-ROCHE-2169044

PATIENT
  Age: 25 Year
  Sex: Female

DRUGS (5)
  1. CODEINE [Suspect]
     Active Substance: CODEINE
     Indication: INTENTIONAL OVERDOSE
     Dosage: LAST DOSE ON 04/JUN/2018
     Route: 048
     Dates: start: 20180604
  2. VALIUM [Suspect]
     Active Substance: DIAZEPAM
     Indication: INTENTIONAL OVERDOSE
     Dosage: LAST DOSE ON 04/JUN/2018
     Route: 048
     Dates: start: 20180604
  3. PARACETAMOL [Suspect]
     Active Substance: ACETAMINOPHEN
     Indication: INTENTIONAL OVERDOSE
     Dosage: LAST DOSE ON 04/JUN/2018
     Route: 048
     Dates: start: 20180604
  4. BROMAZEPAM [Suspect]
     Active Substance: BROMAZEPAM
     Indication: INTENTIONAL OVERDOSE
     Dosage: LAST DOSE ON 04/JUN/2018
     Route: 048
     Dates: start: 20180604
  5. LYSANXIA [Suspect]
     Active Substance: PRAZEPAM
     Indication: INTENTIONAL OVERDOSE
     Dosage: LAST DOSE ON 04/JUN/2018
     Route: 048
     Dates: start: 20180604

REACTIONS (1)
  - Somnolence [Recovered/Resolved]

NARRATIVE: CASE EVENT DATE: 20180605
